FAERS Safety Report 9728184 (Version 3)
Quarter: 2014Q1

REPORT INFORMATION
  Report Type: Spontaneous
  Country: CA (occurrence: CA)
  Receive Date: 20131204
  Receipt Date: 20140214
  Transmission Date: 20141002
  Serious: Yes (Hospitalization, Other)
  Sender: FDA-Public Use
  Company Number: CA-JNJFOC-20131116068

PATIENT
  Age: 63 Year
  Sex: Female
  Weight: 72.6 kg

DRUGS (20)
  1. CAELYX [Suspect]
     Indication: OVARIAN CANCER
     Dosage: 50 MG/M2 ONE IN 28 DAYS
     Route: 042
     Dates: start: 20130904, end: 20130920
  2. CAELYX [Suspect]
     Indication: OVARIAN CANCER
     Route: 042
     Dates: start: 20131007
  3. EC145 [Suspect]
     Indication: OVARIAN CANCER
     Dosage: DAYS 1, 3, 5, 15
     Route: 042
     Dates: start: 20131007, end: 20131021
  4. EC145 [Suspect]
     Indication: OVARIAN CANCER
     Dosage: DAYS 1,3,5,15,17,19
     Route: 042
     Dates: start: 20130904, end: 20130920
  5. PLACEBO [Suspect]
     Indication: OVARIAN CANCER
     Dosage: DAYS 1, 3, 5, 15
     Route: 042
     Dates: start: 20131007, end: 20131021
  6. PLACEBO [Suspect]
     Indication: OVARIAN CANCER
     Route: 042
     Dates: start: 20130904
  7. EC20 [Suspect]
     Indication: SINGLE PHOTON EMISSION COMPUTERISED TOMOGRAM
     Dosage: 20.89 MILLICURIES, ONCE
     Route: 042
     Dates: start: 20130812, end: 20130812
  8. FOLIC ACID [Suspect]
     Indication: SINGLE PHOTON EMISSION COMPUTERISED TOMOGRAM
     Dosage: ONCE
     Route: 042
     Dates: start: 20130812, end: 20130812
  9. SODIUM DOCUSATE [Concomitant]
     Indication: CONSTIPATION
     Route: 048
     Dates: start: 20130917
  10. SENNOSIDES A AND B [Concomitant]
     Indication: CONSTIPATION
     Route: 048
     Dates: start: 20130913
  11. LACTULOSE [Concomitant]
     Indication: CONSTIPATION
     Route: 048
     Dates: start: 20130913
  12. PROCHLORPERAZINE [Concomitant]
     Indication: PROPHYLACTIC CHEMOTHERAPY
     Route: 048
     Dates: start: 20130904
  13. LEVOTHYROXINE [Concomitant]
     Indication: HYPERTHYROIDISM
     Route: 048
     Dates: start: 20120614
  14. VITAMIN D [Concomitant]
     Indication: SUPPLEMENTATION THERAPY
     Dosage: 10000U
     Route: 048
     Dates: start: 20120614
  15. PANTOPRAZOLE [Concomitant]
     Indication: PROPHYLAXIS
     Route: 048
     Dates: start: 20130918
  16. PANTOPRAZOLE [Concomitant]
     Indication: GASTROOESOPHAGEAL REFLUX DISEASE
     Route: 048
     Dates: start: 20130918
  17. CELECOXIB [Concomitant]
     Indication: ABDOMINAL PAIN
     Route: 048
     Dates: start: 20130918
  18. BISACODYL [Concomitant]
     Indication: CONSTIPATION
     Route: 054
     Dates: start: 20130918
  19. OXAZEPAM [Concomitant]
     Indication: INSOMNIA
     Route: 048
     Dates: start: 20130828
  20. TOPOTECAN [Concomitant]
     Indication: OVARIAN CANCER
     Route: 042
     Dates: start: 20131030, end: 20131106

REACTIONS (2)
  - Intestinal obstruction [Recovered/Resolved]
  - Ascites [Not Recovered/Not Resolved]
